FAERS Safety Report 5053535-5 (Version None)
Quarter: 2006Q3

REPORT INFORMATION
  Report Type: 
  Country: None (occurrence: None)
  Receive Date: 20060712
  Receipt Date: 20060704
  Transmission Date: 20061208
  Serious: Yes (Hospitalization)
  Sender: FDA-Public Use
  Company Number: 200612535GDS

PATIENT
  Age: 49 Year
  Sex: Female
  Weight: 52.4 kg

DRUGS (10)
  1. SORAFENIB [Suspect]
     Indication: HEPATIC NEOPLASM MALIGNANT
     Dosage: 400 MG BIDO RAL; 400 MG QD ORAL
     Route: 048
     Dates: start: 20060315, end: 20060416
  2. SORAFENIB [Suspect]
     Indication: HEPATIC NEOPLASM MALIGNANT
     Dosage: 400 MG BIDO RAL; 400 MG QD ORAL
     Route: 048
     Dates: start: 20060426, end: 20060525
  3. MUCALGEL                          (MAG., CAL., ALUMINIUM, SILICATE) [Concomitant]
  4. GASTREG GRAN           (ECABET SODIUM) [Concomitant]
  5. K-40            (POTASSIUM CHLORIDE) [Concomitant]
  6. MUCOSTA [Concomitant]
  7. MACPERAN      (METOCLOPRAMIDE) [Concomitant]
  8. RESPILENE                        [ZIPEPROL DIHYDROCHLORIDE] [Concomitant]
  9. CODEIN PHOSPHATE [Concomitant]
  10. ERDOS   (ERDOSTEINE) [Concomitant]

REACTIONS (1)
  - DYSPNOEA [None]
